FAERS Safety Report 20464402 (Version 1)
Quarter: 2022Q1

REPORT INFORMATION
  Report Type: Spontaneous
  Country: US (occurrence: US)
  Receive Date: 20220211
  Receipt Date: 20220211
  Transmission Date: 20220424
  Serious: Yes (Other)
  Sender: FDA-Public Use
  Company Number: US-NOVARTISPH-NVSC2022US031794

PATIENT
  Age: 60 Year
  Sex: Female

DRUGS (2)
  1. RANITIDINE [Suspect]
     Active Substance: RANITIDINE
     Indication: Gastric disorder
     Dosage: 75 MG,150 MG,,OTHER,TWICE A DAY (75MG) OR DAILY (150MG)
     Route: 048
     Dates: start: 201103, end: 201811
  2. RANITIDINE [Suspect]
     Active Substance: RANITIDINE
     Indication: Gastric disorder
     Dosage: 75 MG,150 MG,,OTHER,TWICE A DAY (75MG) OR DAILY (150MG)
     Route: 048
     Dates: start: 201103, end: 201811

REACTIONS (1)
  - Breast cancer [Recovering/Resolving]

NARRATIVE: CASE EVENT DATE: 20140801
